FAERS Safety Report 20774413 (Version 1)
Quarter: 2022Q2

REPORT INFORMATION
  Report Type: Spontaneous
  Country: ZA (occurrence: ZA)
  Receive Date: 20220502
  Receipt Date: 20220502
  Transmission Date: 20220721
  Serious: Yes (Hospitalization, Other)
  Sender: FDA-Public Use
  Company Number: ZA-ViiV Healthcare Limited-ZA2022GSK070518

PATIENT
  Age: 10 Month
  Sex: Male

DRUGS (10)
  1. LAMIVUDINE [Suspect]
     Active Substance: LAMIVUDINE
     Indication: Antiretroviral therapy
     Dosage: UNK
  2. LAMIVUDINE [Suspect]
     Active Substance: LAMIVUDINE
     Dosage: 150 MG, QD
  3. ABACAVIR [Suspect]
     Active Substance: ABACAVIR
     Indication: Antiretroviral therapy
     Dosage: UNK
  4. ZIDOVUDINE [Suspect]
     Active Substance: ZIDOVUDINE
     Indication: Antiretroviral therapy
     Dosage: UNK
  5. ZIDOVUDINE [Suspect]
     Active Substance: ZIDOVUDINE
     Dosage: 300 MG, 1D (100 MG MANE, 200 MG NOCTE)
  6. DOLUTEGRAVIR [Suspect]
     Active Substance: DOLUTEGRAVIR
     Indication: Antiretroviral therapy
     Dosage: 50 MG, BID
  7. LOPINAVIR\RITONAVIR [Suspect]
     Active Substance: LOPINAVIR\RITONAVIR
     Indication: Antiretroviral therapy
     Dosage: UNK
  8. RALTEGRAVIR [Suspect]
     Active Substance: RALTEGRAVIR
     Indication: Antiretroviral therapy
     Dosage: UNK
  9. DARUNAVIR [Concomitant]
     Active Substance: DARUNAVIR
     Indication: Antiretroviral therapy
     Dosage: 400 MG, BID
  10. RITONAVIR [Concomitant]
     Active Substance: RITONAVIR
     Indication: Antiretroviral therapy
     Dosage: 100 MG, BID

REACTIONS (11)
  - Pathogen resistance [Unknown]
  - Blood HIV RNA increased [Recovered/Resolved]
  - General physical health deterioration [Recovered/Resolved]
  - Virologic failure [Recovered/Resolved]
  - Viral mutation identified [Unknown]
  - HIV-associated neurocognitive disorder [Recovered/Resolved]
  - Disease progression [Recovered/Resolved]
  - Product use complaint [Unknown]
  - Drug resistance [Unknown]
  - Product administered to patient of inappropriate age [Unknown]
  - Off label use [Unknown]
